FAERS Safety Report 5405962-1 (Version None)
Quarter: 2007Q3

REPORT INFORMATION
  Report Type: 
  Country: None (occurrence: None)
  Receive Date: 20070806
  Receipt Date: 20070726
  Transmission Date: 20080115
  Serious: Yes (Other)
  Sender: FDA-Public Use
  Company Number: US-AMGEN-US235909

PATIENT
  Sex: Female
  Weight: 64.5 kg

DRUGS (3)
  1. ENBREL [Suspect]
     Indication: RHEUMATOID ARTHRITIS
     Route: 058
     Dates: start: 20010201, end: 20070801
  2. METHOTREXATE [Concomitant]
     Route: 065
     Dates: start: 20000101, end: 20070801
  3. SULFASALAZINE [Concomitant]
     Route: 065
     Dates: start: 20010101

REACTIONS (3)
  - FACIAL PALSY [None]
  - RHEUMATOID ARTHRITIS [None]
  - TOOTH INFECTION [None]
